FAERS Safety Report 13071292 (Version 1)
Quarter: 2016Q4

REPORT INFORMATION
  Report Type: Spontaneous
  Country: PL (occurrence: PL)
  Receive Date: 20161229
  Receipt Date: 20161229
  Transmission Date: 20170207
  Serious: Yes (Other)
  Sender: FDA-Public Use
  Company Number: PL-TEVA-724341ACC

PATIENT
  Sex: Female
  Weight: 72 kg

DRUGS (1)
  1. CICLOSPORIN [Suspect]
     Active Substance: CYCLOSPORINE
     Route: 048
     Dates: start: 20110415, end: 20150511

REACTIONS (2)
  - Blood pressure increased [Unknown]
  - Angina pectoris [Unknown]
